FAERS Safety Report 7210735-3 (Version None)
Quarter: 2011Q1

REPORT INFORMATION
  Report Type: 
  Country: None (occurrence: None)
  Receive Date: 20110105
  Receipt Date: 20101231
  Transmission Date: 20110831
  Serious: No
  Sender: FDA-Public Use
  Company Number: US-PFIZER INC-2006092240

PATIENT
  Sex: Male
  Weight: 77 kg

DRUGS (10)
  1. LYRICA [Suspect]
     Indication: NEUROPATHY PERIPHERAL
     Dosage: 100 MG, 2X/DAY
     Route: 048
     Dates: start: 20060601
  2. EFFEXOR XR [Suspect]
     Indication: DEPRESSION
     Dosage: 75 MG, 1X/DAY
     Route: 048
     Dates: start: 20050101, end: 20060601
  3. OXYCODONE HCL [Concomitant]
     Route: 065
  4. LYRICA [Suspect]
     Indication: PAIN
  5. MORPHINE [Concomitant]
     Route: 065
  6. EFFEXOR XR [Suspect]
     Dosage: 150 MG, 1X/DAY
     Route: 048
     Dates: start: 20060601
  7. CELEBREX [Suspect]
     Indication: PAIN
     Route: 065
  8. HYDROCODONE [Concomitant]
     Route: 065
  9. NEXIUM [Concomitant]
  10. NEURONTIN [Suspect]
     Indication: PAIN
     Dosage: 300 MG, 3X/DAY
     Dates: start: 19920101, end: 20060601

REACTIONS (10)
  - WEIGHT INCREASED [None]
  - NIGHTMARE [None]
  - ABNORMAL DREAMS [None]
  - TREMOR [None]
  - DRUG WITHDRAWAL SYNDROME [None]
  - PAIN [None]
  - MYALGIA [None]
  - FEELING ABNORMAL [None]
  - DEPRESSION [None]
  - DRUG INEFFECTIVE [None]
